FAERS Safety Report 8790199 (Version 2)
Quarter: 2013Q4

REPORT INFORMATION
  Report Type: Spontaneous
  Country: US (occurrence: US)
  Receive Date: 20120917
  Receipt Date: 20131101
  Transmission Date: 20140711
  Serious: No
  Sender: FDA-Public Use
  Company Number: US-009507513-1209USA004982

PATIENT
  Sex: Female

DRUGS (4)
  1. PEGINTRON [Suspect]
     Indication: HEPATITIS C
     Dosage: 120 MICROGRAM, QW
     Route: 058
     Dates: start: 20120725
  2. RIBASPHERE [Suspect]
     Indication: HEPATITIS C
     Dosage: 600 MG, QAM
  3. RIBASPHERE [Suspect]
     Dosage: 400 MG, QPM
  4. TELAPREVIR [Concomitant]
     Indication: HEPATITIS C
     Dosage: 750 MG, TID

REACTIONS (2)
  - Viral load increased [Unknown]
  - Drug ineffective [Unknown]
